FAERS Safety Report 25209691 (Version 5)
Quarter: 2025Q4

REPORT INFORMATION
  Report Type: Spontaneous
  Country: AU (occurrence: AU)
  Receive Date: 20250417
  Receipt Date: 20251216
  Transmission Date: 20260117
  Serious: Yes (Hospitalization, Other)
  Sender: MYLAN
  Company Number: AU-MYLANLABS-2025M1026675

PATIENT
  Age: 48 Year
  Sex: Female
  Weight: 88 kg

DRUGS (18)
  1. CLOZARIL [Suspect]
     Active Substance: CLOZAPINE
     Indication: Schizophrenia
     Dosage: 200 MILLIGRAM
     Route: 061
  2. CLOZARIL [Suspect]
     Active Substance: CLOZAPINE
     Dosage: 12.5 MILLIGRAM (1ST DOSE)
     Route: 061
  3. CLOZARIL [Suspect]
     Active Substance: CLOZAPINE
     Dosage: UNK, BID (UPTITRATED TO 50MG MANE AND 150MG NOCTE)
     Route: 061
     Dates: start: 20250316
  4. CLOZARIL [Suspect]
     Active Substance: CLOZAPINE
     Dosage: 50 MILLIGRAM, AM (MANE)
     Route: 061
     Dates: start: 20250317, end: 20250317
  5. CLOZARIL [Suspect]
     Active Substance: CLOZAPINE
     Dosage: UNK, BID (25MG MANE AND 75MG NOCTE)
     Route: 061
     Dates: start: 20251007
  6. ZUCLOPENTHIXOL [Concomitant]
     Active Substance: ZUCLOPENTHIXOL
     Dosage: 10 MILLIGRAM, BID (ON ADMISSION)
  7. ZUCLOPENTHIXOL [Concomitant]
     Active Substance: ZUCLOPENTHIXOL
     Dosage: 10 MILLIGRAM, PM (NOCTE) (REDUCED DOSE)
     Dates: start: 20250309, end: 20250314
  8. BENZTROPINE [Concomitant]
     Active Substance: BENZTROPINE
     Dosage: 2 MILLIGRAM, BID (PRIOR TO ADMISSION)
  9. BENZTROPINE [Concomitant]
     Active Substance: BENZTROPINE
     Dosage: 1 MILLIGRAM, BID (REDUCED ON ADMISSION)
  10. BENZTROPINE [Concomitant]
     Active Substance: BENZTROPINE
     Dosage: 1 MILLIGRAM, AM (MANE) (DOWN-TITRATED AS ZUCLOPENTHIXOL DOWN-TITRATED)
     Dates: start: 20250319, end: 20250325
  11. PROPRANOLOL HYDROCHLORIDE [Concomitant]
     Active Substance: PROPRANOLOL HYDROCHLORIDE
     Dosage: 10 MILLIGRAM, BID (ON ADMISSION)
  12. PROPRANOLOL HYDROCHLORIDE [Concomitant]
     Active Substance: PROPRANOLOL HYDROCHLORIDE
     Dosage: 5 MILLIGRAM, BID (REDUCED)
     Dates: start: 20250311, end: 20250317
  13. IBUPROFEN [Concomitant]
     Active Substance: IBUPROFEN
     Dosage: UNK, PRN
  14. IBUPROFEN [Concomitant]
     Active Substance: IBUPROFEN
     Dosage: UNK (ONE REGULAR DOSE)
     Dates: start: 20250319, end: 20250319
  15. ENOXAPARIN [Concomitant]
     Active Substance: ENOXAPARIN
     Dosage: 40 MILLIGRAM
     Dates: start: 20250319, end: 20250320
  16. ROSUVASTATIN [Concomitant]
     Active Substance: ROSUVASTATIN
     Dosage: 10 MILLIGRAM, PM (NOCTE)
  17. METFORMIN [Concomitant]
     Active Substance: METFORMIN HYDROCHLORIDE
     Indication: Antipsychotic therapy
     Dosage: 1000 MILLIGRAM, PM (NOCTE, MR)
  18. DIAZEPAM [Concomitant]
     Active Substance: DIAZEPAM
     Dosage: UNK, PRN (5-10MG OD)

REACTIONS (12)
  - Hospitalisation [Recovered/Resolved]
  - Psychotic symptom [Unknown]
  - Mental impairment [Unknown]
  - Myocarditis [Unknown]
  - Myocardial ischaemia [Unknown]
  - C-reactive protein increased [Not Recovered/Not Resolved]
  - Troponin increased [Recovered/Resolved]
  - Emotional distress [Unknown]
  - Salivary hypersecretion [Unknown]
  - Viral infection [Unknown]
  - Pyrexia [Recovered/Resolved]
  - Tachycardia [Unknown]

NARRATIVE: CASE EVENT DATE: 20250301
